FAERS Safety Report 14718257 (Version 6)
Quarter: 2019Q1

REPORT INFORMATION
  Report Type: Spontaneous
  Country: US (occurrence: US)
  Receive Date: 20180404
  Receipt Date: 20190311
  Transmission Date: 20190417
  Serious: No
  Sender: FDA-Public Use
  Company Number: US-SA-2018SA073559

PATIENT
  Age: 57 Year
  Sex: Male

DRUGS (10)
  1. DUPIXENT [Suspect]
     Active Substance: DUPILUMAB
     Dosage: UNK, QW
     Route: 058
  2. ASPIRINE [Concomitant]
     Active Substance: ASPIRIN
     Dosage: 325 MG TABLET
  3. DESONIDE. [Concomitant]
     Active Substance: DESONIDE
     Dosage: 0.05% CREAM
  4. DUPIXENT [Suspect]
     Active Substance: DUPILUMAB
     Indication: DERMATITIS ATOPIC
     Dosage: 300 MG,QOW
     Route: 058
     Dates: start: 201801
  5. DUPIXENT [Suspect]
     Active Substance: DUPILUMAB
     Dosage: 300 MG,QOW
     Route: 058
     Dates: start: 20180205
  6. TERAZOSIN HCL [Concomitant]
     Active Substance: TERAZOSIN HYDROCHLORIDE
     Dosage: 2 MG CAPSULE
  7. TRIAMCINOLONE ACETONIDE. [Concomitant]
     Active Substance: TRIAMCINOLONE ACETONIDE
  8. MULTIVITAMINS [VITAMINS NOS] [Concomitant]
     Active Substance: VITAMINS
  9. DUTASTERIDE. [Concomitant]
     Active Substance: DUTASTERIDE
  10. VITAMIN D2 [Concomitant]
     Active Substance: ERGOCALCIFEROL
     Dosage: 50000 U CAPSULE

REACTIONS (9)
  - Eye allergy [Unknown]
  - Eye irritation [Unknown]
  - Swelling [Unknown]
  - Condition aggravated [Unknown]
  - Dermatitis [Unknown]
  - Ocular hyperaemia [Unknown]
  - Eye pruritus [Unknown]
  - Pruritus [Unknown]
  - Immune system disorder [Unknown]

NARRATIVE: CASE EVENT DATE: 201808
